FAERS Safety Report 16561573 (Version 2)
Quarter: 2019Q3

REPORT INFORMATION
  Report Type: Spontaneous
  Country: US (occurrence: US)
  Receive Date: 20190711
  Receipt Date: 20190809
  Transmission Date: 20191004
  Serious: Yes (Other)
  Sender: FDA-Public Use
  Company Number: US-JNJFOC-20190702233

PATIENT
  Sex: Female

DRUGS (4)
  1. AVEENO BABY DAILY MOISTURE [Suspect]
     Active Substance: DIMETHICONE
     Indication: ECZEMA
     Dosage: QUARTER SIZE AMOUNT
     Route: 061
     Dates: start: 2013
  2. AVEENO BABY CALMING COMFORT [Suspect]
     Active Substance: DIMETHICONE
     Indication: ECZEMA
     Dosage: QUARTER SIZE AMOUNT
     Route: 061
     Dates: start: 2013
  3. AVEENO BABY ECZEMA THERAPY [Suspect]
     Active Substance: OATMEAL
     Indication: ECZEMA
     Dosage: QUARTER SIZE AMOUNT
     Route: 061
     Dates: start: 2013
  4. AVEENO BABY SOOTHING RELIEF MOISTURIZING [Suspect]
     Active Substance: DIMETHICONE
     Indication: ECZEMA
     Dosage: QUARTER SIZE AMOUNT
     Route: 061
     Dates: start: 2013

REACTIONS (2)
  - Suicidal ideation [Recovered/Resolved]
  - Application site reaction [Recovered/Resolved]
